FAERS Safety Report 19987811 (Version 10)
Quarter: 2022Q1

REPORT INFORMATION
  Report Type: Spontaneous
  Country: CA (occurrence: CA)
  Receive Date: 20211023
  Receipt Date: 20220331
  Transmission Date: 20220423
  Serious: Yes (Hospitalization, Other)
  Sender: FDA-Public Use
  Company Number: CA-CELLTRION INC.-2021CA014458

PATIENT

DRUGS (11)
  1. INFLECTRA [Suspect]
     Active Substance: INFLIXIMAB-DYYB
     Indication: Crohn^s disease
     Dosage: 1 DF, WEEK 0 DOSE (RECEIVED IN HOSPITAL)
     Route: 042
     Dates: start: 20210713, end: 20210713
  2. INFLECTRA [Suspect]
     Active Substance: INFLIXIMAB-DYYB
     Dosage: 800 MG (10 MG/KG), AT WEEK 2 AND 6, THEN EVERY 8 WEEKS
     Route: 042
     Dates: start: 20210730
  3. INFLECTRA [Suspect]
     Active Substance: INFLIXIMAB-DYYB
     Dosage: 10 MG/KG, INDUCTION DOSES AT WEEK 2 AND 6, THEN EVERY 8 WEEKS
     Route: 042
     Dates: start: 20210730, end: 20211216
  4. INFLECTRA [Suspect]
     Active Substance: INFLIXIMAB-DYYB
     Dosage: 800 MG, AT WEEK 2 AND 6, THEN EVERY 8 WEEKS
     Route: 042
     Dates: start: 20210827
  5. INFLECTRA [Suspect]
     Active Substance: INFLIXIMAB-DYYB
     Dosage: 10 MG/KG INDUCTION DOSES AT WEEK 2 AND 6, THEN EVERY 8 WEEKS
     Route: 042
     Dates: start: 20211021
  6. INFLECTRA [Suspect]
     Active Substance: INFLIXIMAB-DYYB
     Dosage: 10 MG/KG INDUCTION DOSES AT WEEK 2 AND 6, THEN EVERY 8 WEEKS
     Route: 042
     Dates: start: 20211216
  7. INFLECTRA [Suspect]
     Active Substance: INFLIXIMAB-DYYB
     Dosage: 10 MG/KG, EVERY 4 WEEKS
     Route: 042
     Dates: start: 20220202
  8. CALCIUM [Concomitant]
     Active Substance: CALCIUM
     Dosage: 1 DF DOSAGE NOT AVAILABLE
  9. IRON [Concomitant]
     Active Substance: IRON
     Dosage: UNK
     Dates: start: 20220213
  10. PREDNISONE [Concomitant]
     Active Substance: PREDNISONE
     Dosage: 1 DF DOSAGE NOT AVAILABLE
  11. CHOLECALCIFEROL [Concomitant]
     Active Substance: CHOLECALCIFEROL
     Dosage: 1 DF
     Route: 065

REACTIONS (7)
  - Gastrointestinal disorder [Not Recovered/Not Resolved]
  - Anaemia [Not Recovered/Not Resolved]
  - Off label use [Unknown]
  - Inappropriate schedule of product administration [Unknown]
  - Fatigue [Not Recovered/Not Resolved]
  - Condition aggravated [Not Recovered/Not Resolved]
  - Weight decreased [Not Recovered/Not Resolved]

NARRATIVE: CASE EVENT DATE: 20210101
